FAERS Safety Report 20896857 (Version 1)
Quarter: 2022Q2

REPORT INFORMATION
  Report Type: Spontaneous
  Country: US (occurrence: US)
  Receive Date: 20220531
  Receipt Date: 20220531
  Transmission Date: 20220720
  Serious: Yes (Other)
  Sender: FDA-Public Use
  Company Number: US-BRISTOL-MYERS SQUIBB COMPANY-2022-046129

PATIENT
  Age: 74 Year
  Sex: Male
  Weight: 83.46 kg

DRUGS (2)
  1. ELIQUIS [Suspect]
     Active Substance: APIXABAN
     Indication: Deep vein thrombosis
     Dosage: DOSE : 5MG (INITIAL); 2.5MG (CURRENT);     FREQ : BID
     Route: 048
  2. ELIQUIS [Suspect]
     Active Substance: APIXABAN
     Indication: Pulmonary embolism
     Route: 048
     Dates: start: 2017

REACTIONS (5)
  - Haemorrhage [Unknown]
  - Abdominal pain [Unknown]
  - Gallbladder disorder [Unknown]
  - Aortic aneurysm [Unknown]
  - Wrong technique in product usage process [Unknown]
